FAERS Safety Report 4590096-9 (Version None)
Quarter: 2005Q1

REPORT INFORMATION
  Report Type: 
  Country: None (occurrence: None)
  Receive Date: 20050217
  Receipt Date: 20050205
  Transmission Date: 20050727
  Serious: Yes (Hospitalization, Other)
  Sender: FDA-Public Use
  Company Number: 212331

PATIENT
  Age: 53 Year
  Sex: Female

DRUGS (1)
  1. MABTHERA (RITUXIMAB) CONC FOR SOLUTION FOR INFUSION [Suspect]
     Indication: NON-HODGKIN'S LYMPHOMA
     Dosage: 650 MG, 1/WEEK, INTRAVENOUS
     Route: 042
     Dates: start: 20040517, end: 20040615

REACTIONS (3)
  - ERYTHROPOIESIS ABNORMAL [None]
  - FEBRILE NEUTROPENIA [None]
  - MYELOID MATURATION ARREST [None]
